FAERS Safety Report 17601800 (Version 1)
Quarter: 2020Q1

REPORT INFORMATION
  Report Type: Report from Study
  Country: None (occurrence: NL)
  Receive Date: 20200331
  Receipt Date: 20200331
  Transmission Date: 20200409
  Serious: Yes (Other)
  Sender: FDA-Public Use
  Company Number: NL-ABBVIE-18S-114-2555881-00

PATIENT
  Sex: Female
  Weight: 51 kg

DRUGS (5)
  1. DUODOPA [Suspect]
     Active Substance: CARBIDOPA\LEVODOPA
     Dosage: CD DECREASED?OD 12,5ML CD 3,0ML/UUR ED 2,0ML
     Route: 050
     Dates: start: 2017
  2. SINEMET 125CR [Concomitant]
     Indication: PARKINSON^S DISEASE
  3. DUODOPA [Suspect]
     Active Substance: CARBIDOPA\LEVODOPA
     Indication: PARKINSON^S DISEASE
     Dosage: MD 12.5 CD 3.0 ED 2.0 16 HOUR ADMINISTRATION
     Route: 050
     Dates: start: 20150630, end: 2017
  4. MACROGOL [Concomitant]
     Active Substance: POLYETHYLENE GLYCOLS
     Indication: PRODUCT USED FOR UNKNOWN INDICATION
  5. SYMMETREL [Concomitant]
     Active Substance: AMANTADINE HYDROCHLORIDE
     Indication: PARKINSON^S DISEASE

REACTIONS (35)
  - Affective disorder [Unknown]
  - Dyskinesia [Recovering/Resolving]
  - Stoma site discharge [Not Recovered/Not Resolved]
  - Parkinson^s disease [Recovered/Resolved]
  - Gastrointestinal neoplasm [Unknown]
  - Memory impairment [Recovered/Resolved]
  - Mood altered [Not Recovered/Not Resolved]
  - Freezing phenomenon [Unknown]
  - Fibroma [Recovering/Resolving]
  - Hypotension [Not Recovered/Not Resolved]
  - Unevaluable event [Not Recovered/Not Resolved]
  - Bradykinesia [Not Recovered/Not Resolved]
  - Weight decreased [Recovering/Resolving]
  - Faeces hard [Recovering/Resolving]
  - Dyschezia [Recovering/Resolving]
  - Decreased appetite [Not Recovered/Not Resolved]
  - Fatigue [Not Recovered/Not Resolved]
  - Muscle rigidity [Not Recovered/Not Resolved]
  - Drug ineffective [Not Recovered/Not Resolved]
  - Middle insomnia [Recovered/Resolved]
  - Nocturia [Not Recovered/Not Resolved]
  - On and off phenomenon [Not Recovered/Not Resolved]
  - Device leakage [Unknown]
  - Tremor [Unknown]
  - Fall [Not Recovered/Not Resolved]
  - Stoma site discharge [Recovered/Resolved]
  - Device dislocation [Unknown]
  - Dizziness [Not Recovered/Not Resolved]
  - Sleep disorder [Unknown]
  - Faeces hard [Recovered/Resolved]
  - Stoma site haemorrhage [Recovered/Resolved]
  - Gait disturbance [Not Recovered/Not Resolved]
  - Abnormal dreams [Not Recovered/Not Resolved]
  - Orthostatic hypotension [Not Recovered/Not Resolved]
  - Somnolence [Not Recovered/Not Resolved]
